FAERS Safety Report 11381573 (Version 1)
Quarter: 2015Q3

REPORT INFORMATION
  Report Type: Spontaneous
  Country: JP (occurrence: JP)
  Receive Date: 20150814
  Receipt Date: 20150814
  Transmission Date: 20151125
  Serious: Yes (Hospitalization, Other)
  Sender: FDA-Public Use
  Company Number: JP-PFIZER INC-2015267114

PATIENT
  Age: 64 Year
  Sex: Female
  Weight: 38 kg

DRUGS (4)
  1. ELPLAT [Suspect]
     Active Substance: OXALIPLATIN
     Indication: PANCREATIC CARCINOMA METASTATIC
     Dosage: 110 MG/BODY (83.5 MG/M2), 1X/DAY
     Route: 041
     Dates: start: 20141104, end: 20141104
  2. LEVOFOLINATE [Suspect]
     Active Substance: LEVOLEUCOVORIN CALCIUM
     Indication: PANCREATIC CARCINOMA METASTATIC
     Dosage: 260 MG/BODY (197.3 MG/M2), 1X/DAY
     Route: 041
     Dates: start: 20141104, end: 20141104
  3. CAMPTO [Suspect]
     Active Substance: IRINOTECAN
     Indication: PANCREATIC CARCINOMA METASTATIC
     Dosage: 190 MG/BODY (144.2 MG/M2), 1X/DAY
     Route: 041
     Dates: start: 20141104, end: 20141104
  4. 5-FU [Concomitant]
     Active Substance: FLUOROURACIL
     Indication: PANCREATIC CARCINOMA METASTATIC
     Dosage: 3100 MG/BODY/D1-2 (2352 MG/M2/D1-2)
     Route: 041
     Dates: start: 20141104, end: 20141104

REACTIONS (3)
  - Blood alkaline phosphatase increased [Unknown]
  - Biliary tract infection [Unknown]
  - White blood cell count increased [Unknown]
